FAERS Safety Report 21665987 (Version 1)
Quarter: 2022Q4

REPORT INFORMATION
  Report Type: Spontaneous
  Country: US (occurrence: None)
  Receive Date: 20221201
  Receipt Date: 20221201
  Transmission Date: 20230113
  Serious: No
  Sender: FDA-Public Use
  Company Number: 2022A366720

PATIENT
  Age: 27550 Day
  Sex: Male
  Weight: 113.4 kg

DRUGS (1)
  1. SYMBICORT [Suspect]
     Active Substance: BUDESONIDE\FORMOTEROL FUMARATE DIHYDRATE
     Indication: Asthma
     Dosage: 160/4.5 (UNIT WAS UNKNOWN) 2 PUFFS EVERY DAY, HOWEVER HIS NURSE TOLD HIM TO TAKE IT 2 PUFFS EVERY...
     Route: 055
     Dates: start: 20221031, end: 20221103

REACTIONS (9)
  - Abdominal pain upper [Unknown]
  - Oral pain [Unknown]
  - Back pain [Unknown]
  - Wheezing [Unknown]
  - Thinking abnormal [Unknown]
  - Stomatitis [Unknown]
  - Drug ineffective [Unknown]
  - Therapeutic response shortened [Unknown]
  - Product use issue [Unknown]

NARRATIVE: CASE EVENT DATE: 20221104
